FAERS Safety Report 11185401 (Version 1)
Quarter: 2015Q2

REPORT INFORMATION
  Report Type: Spontaneous
  Country: US (occurrence: US)
  Receive Date: 20150612
  Receipt Date: 20150612
  Transmission Date: 20150821
  Serious: Yes (Other)
  Sender: FDA-Public Use
  Company Number: US-CIPLA LTD.-2015US04610

PATIENT

DRUGS (9)
  1. CARBOPLATIN. [Suspect]
     Active Substance: CARBOPLATIN
     Indication: NEOPLASM
     Dosage: AUC 6 MG/ML.MIN ON DAY 1 OF THE 3-WEEK CYCLE
     Route: 065
  2. PACLITAXEL. [Suspect]
     Active Substance: PACLITAXEL
     Indication: NEOPLASM
     Dosage: 200 MG/M2, ON DAY 1 OF THE 3-WEEK CYCLE
     Route: 065
  3. 5-FLUOROURACIL [Suspect]
     Active Substance: FLUOROURACIL
     Indication: NEOPLASM
     Dosage: 400 MG/M2
     Route: 042
  4. DOCETAXEL. [Suspect]
     Active Substance: DOCETAXEL
     Indication: NEOPLASM
     Dosage: 75 MG/M2 ON DAY 1 OF A 3-WEEK CYCLE
     Route: 042
  5. AMG 386 [Suspect]
     Active Substance: TREBANANIB
     Indication: NEOPLASM
     Dosage: 10 MG/KG, WEEKLY
     Route: 042
  6. OXALIPLATIN. [Suspect]
     Active Substance: OXALIPLATIN
     Indication: NEOPLASM
     Dosage: 85 MG/M2
  7. LEUCOVORIN [Suspect]
     Active Substance: LEUCOVORIN
     Indication: NEOPLASM
     Dosage: 200 MG/M2
     Route: 042
  8. LEUCOVORIN [Suspect]
     Active Substance: LEUCOVORIN
     Dosage: UNK
  9. 5-FLUOROURACIL [Suspect]
     Active Substance: FLUOROURACIL
     Dosage: 600 MG/M2
     Route: 042

REACTIONS (1)
  - Disease progression [Unknown]
